FAERS Safety Report 5863513-1 (Version None)
Quarter: 2008Q3

REPORT INFORMATION
  Report Type: 
  Country: None (occurrence: None)
  Receive Date: 20080828
  Receipt Date: 20080821
  Transmission Date: 20090109
  Serious: Yes (Hospitalization)
  Sender: FDA-Public Use
  Company Number: US-PFIZER INC-2006070999

PATIENT
  Sex: Male
  Weight: 75.4 kg

DRUGS (16)
  1. SUTENT [Suspect]
     Indication: RENAL CELL CARCINOMA
     Route: 048
     Dates: start: 20060502, end: 20060529
  2. MAXZIDE [Concomitant]
     Route: 048
  3. POTASSIUM CHLORIDE [Concomitant]
     Route: 048
  4. METOPROLOL TARTRATE [Concomitant]
     Route: 048
  5. GEMFIBROZIL [Concomitant]
     Route: 048
  6. OXYCONTIN [Concomitant]
     Route: 048
  7. OXYCODONE HCL [Concomitant]
     Route: 048
  8. CELECOXIB [Concomitant]
     Route: 048
  9. FLUTICASONE PROPIONATE [Concomitant]
     Route: 048
  10. ACETYLSALICYLIC ACID SRT [Concomitant]
     Route: 048
  11. DOCUSATE [Concomitant]
     Route: 048
  12. HERBAL PREPARATION [Concomitant]
     Route: 048
  13. ZOLPIDEM [Concomitant]
     Route: 048
  14. COMPAZINE [Concomitant]
     Route: 048
  15. OLANZAPINE [Concomitant]
     Route: 048
  16. VALSARTAN [Concomitant]
     Route: 048

REACTIONS (4)
  - ASTHENIA [None]
  - DEHYDRATION [None]
  - HYPOTENSION [None]
  - RENAL FAILURE ACUTE [None]
